FAERS Safety Report 17156262 (Version 1)
Quarter: 2019Q4

REPORT INFORMATION
  Report Type: Spontaneous
  Country: US (occurrence: US)
  Receive Date: 20191216
  Receipt Date: 20191216
  Transmission Date: 20200122
  Serious: No
  Sender: FDA-Public Use
  Company Number: US-BAUSCH-BL-2019-061522

PATIENT
  Sex: Female
  Weight: 72.64 kg

DRUGS (1)
  1. TRULANCE [Suspect]
     Active Substance: PLECANATIDE
     Indication: CONSTIPATION
     Dosage: START DATE: SOMETIME IN JUN/2019
     Route: 048
     Dates: start: 201906, end: 2019

REACTIONS (4)
  - Symptom recurrence [Not Recovered/Not Resolved]
  - Inability to afford medication [Unknown]
  - Intentional dose omission [Unknown]
  - Constipation [Not Recovered/Not Resolved]

NARRATIVE: CASE EVENT DATE: 2019
